FAERS Safety Report 19180788 (Version 2)
Quarter: 2021Q2

REPORT INFORMATION
  Report Type: Spontaneous
  Country: US (occurrence: US)
  Receive Date: 20210426
  Receipt Date: 20210429
  Transmission Date: 20210717
  Serious: Yes (Hospitalization)
  Sender: FDA-Public Use
  Company Number: US-MELINTA THERAPEUTICS, LLC-US-MLNT-21-00041

PATIENT
  Sex: Male
  Weight: 163.29 kg

DRUGS (2)
  1. BAXDELA [Suspect]
     Active Substance: DELAFLOXACIN MEGLUMINE
     Indication: WOUND INFECTION
  2. BAXDELA [Suspect]
     Active Substance: DELAFLOXACIN MEGLUMINE
     Indication: DIABETIC WOUND
     Route: 048
     Dates: start: 20191028

REACTIONS (3)
  - Renal failure [Unknown]
  - Blood glucose increased [Unknown]
  - Impaired quality of life [Unknown]
